FAERS Safety Report 8458926-8 (Version None)
Quarter: 2012Q2

REPORT INFORMATION
  Report Type: 
  Country: None (occurrence: None)
  Receive Date: 20120622
  Receipt Date: 20120615
  Transmission Date: 20120825
  Serious: Yes (Hospitalization)
  Sender: FDA-Public Use
  Company Number: CO-ROCHE-1057032

PATIENT
  Sex: Female

DRUGS (4)
  1. LUCENTIS [Suspect]
     Route: 050
     Dates: start: 20111012
  2. WARFARIN SODIUM [Concomitant]
     Indication: THROMBOSIS
  3. PHENYTOIN SODIUM CAP [Concomitant]
     Indication: THROMBOSIS
     Dosage: 2 TABLETS AT NIGHT
  4. LUCENTIS [Suspect]
     Indication: AGE-RELATED MACULAR DEGENERATION
     Route: 050

REACTIONS (1)
  - THROMBOSIS [None]
